FAERS Safety Report 6335010-0 (Version None)
Quarter: 2009Q3

REPORT INFORMATION
  Report Type: 
  Country: None (occurrence: None)
  Receive Date: 20090831
  Receipt Date: 20090825
  Transmission Date: 20100115
  Serious: Yes (Hospitalization)
  Sender: FDA-Public Use
  Company Number: DE-AMGEN-UK347170

PATIENT
  Sex: Female
  Weight: 89.3 kg

DRUGS (6)
  1. NEULASTA [Suspect]
     Indication: CHEMOTHERAPY
     Route: 058
     Dates: start: 20090313
  2. TAXOTERE [Concomitant]
     Route: 042
     Dates: start: 20090514, end: 20090514
  3. ENDOXAN [Concomitant]
     Route: 042
     Dates: start: 20090514, end: 20090514
  4. DEXAMETHASONE [Concomitant]
     Route: 048
     Dates: start: 20090513, end: 20090515
  5. METOPROLOL SUCCINATE [Concomitant]
     Route: 048
  6. PRAVASTATIN SODIUM [Concomitant]
     Route: 048

REACTIONS (4)
  - BACK PAIN [None]
  - CYANOSIS [None]
  - DYSPNOEA [None]
  - HYPERSENSITIVITY [None]
